FAERS Safety Report 11941274 (Version 20)
Quarter: 2020Q1

REPORT INFORMATION
  Report Type: Spontaneous
  Country: US (occurrence: US)
  Receive Date: 20160122
  Receipt Date: 20200221
  Transmission Date: 20200409
  Serious: Yes (Hospitalization, Other)
  Sender: FDA-Public Use
  Company Number: US-ACTELION-A-NJ2016-130302

PATIENT
  Age: 31 Year
  Sex: Female

DRUGS (13)
  1. SYNTHROID [Concomitant]
     Active Substance: LEVOTHYROXINE SODIUM
     Dosage: 125 MEQ, UNK
     Route: 048
  2. ZOLPIDEM [Concomitant]
     Active Substance: ZOLPIDEM TARTRATE
     Dosage: 10 MG, QHS
     Route: 048
  3. LEVEMIR [Concomitant]
     Active Substance: INSULIN DETEMIR
     Dosage: 15 U, QD
     Route: 058
  4. SENSIPAR [Concomitant]
     Active Substance: CINACALCET HYDROCHLORIDE
     Dosage: 30 MG, UNK
     Route: 048
  5. RIOCIGUAT. [Concomitant]
     Active Substance: RIOCIGUAT
  6. SILDENAFIL. [Concomitant]
     Active Substance: SILDENAFIL
     Indication: PULMONARY ARTERIAL HYPERTENSION
     Dosage: 20 MG, TID
     Route: 048
     Dates: start: 20170807
  7. NEXIUM [Concomitant]
     Active Substance: ESOMEPRAZOLE MAGNESIUM
     Dosage: 20 MG, UNK
     Route: 048
  8. ADCIRCA [Concomitant]
     Active Substance: TADALAFIL
     Dosage: 20 MG, UNK
     Route: 048
  9. NOVOLOG [Concomitant]
     Active Substance: INSULIN ASPART
     Dosage: 6 U, UNK
  10. NOVOLIN N [Concomitant]
     Active Substance: INSULIN HUMAN
     Dosage: 10 U, UNK
     Route: 058
  11. PANTOPRAZOLE [Concomitant]
     Active Substance: PANTOPRAZOLE
     Dosage: 40 MG, QD
  12. OPSUMIT [Suspect]
     Active Substance: MACITENTAN
     Indication: PULMONARY ARTERIAL HYPERTENSION
     Dosage: 10 MG, QD
     Route: 048
     Dates: start: 20151019
  13. RENVELA [Concomitant]
     Active Substance: SEVELAMER CARBONATE
     Dosage: 800 MG, TID
     Route: 048

REACTIONS (57)
  - Haemodialysis [Not Recovered/Not Resolved]
  - Abdominal distension [Recovered/Resolved with Sequelae]
  - Thrombocytopenia [Not Recovered/Not Resolved]
  - Bronchitis [Recovered/Resolved]
  - Post procedural oedema [Unknown]
  - Acute kidney injury [Recovered/Resolved]
  - Dyspnoea [Recovered/Resolved with Sequelae]
  - Transaminases increased [Recovering/Resolving]
  - Productive cough [Recovered/Resolved]
  - Hyperkalaemia [Recovered/Resolved]
  - Pyelonephritis acute [Recovered/Resolved with Sequelae]
  - Gastroenteritis [Recovered/Resolved]
  - Vomiting [Recovered/Resolved]
  - Anaemia [Recovered/Resolved with Sequelae]
  - Alanine aminotransferase increased [Recovering/Resolving]
  - End stage renal disease [Recovered/Resolved with Sequelae]
  - Pulmonary hypertension [Recovered/Resolved with Sequelae]
  - Anaemia postoperative [Not Recovered/Not Resolved]
  - Hypovolaemia [Recovered/Resolved]
  - Vascular access malfunction [Recovered/Resolved with Sequelae]
  - Haemoglobin decreased [Recovering/Resolving]
  - Nasopharyngitis [Unknown]
  - Alopecia [Not Recovered/Not Resolved]
  - Hypocalcaemia [Recovered/Resolved with Sequelae]
  - Metabolic acidosis [Recovered/Resolved with Sequelae]
  - Pulmonary arterial pressure increased [Recovered/Resolved with Sequelae]
  - Hyperglycaemia [Recovered/Resolved]
  - Seizure [Recovered/Resolved]
  - Fluid overload [Recovered/Resolved with Sequelae]
  - Hypotension [Recovered/Resolved]
  - Parathyroidectomy [Recovered/Resolved with Sequelae]
  - Weight increased [Recovered/Resolved with Sequelae]
  - Blood creatinine increased [Not Recovered/Not Resolved]
  - Urinary tract infection [Unknown]
  - Dialysis device insertion [Recovered/Resolved with Sequelae]
  - Myalgia [Recovered/Resolved]
  - Hyperparathyroidism secondary [Unknown]
  - Secondary hyperthyroidism [Recovered/Resolved with Sequelae]
  - Haemodialysis complication [Recovered/Resolved]
  - Transfusion [Not Recovered/Not Resolved]
  - Bacteraemia [Recovered/Resolved]
  - Septic shock [Recovered/Resolved]
  - Arteriovenous fistula operation [Recovered/Resolved with Sequelae]
  - Sepsis [Unknown]
  - Aspartate aminotransferase increased [Recovering/Resolving]
  - Pneumonia [Recovered/Resolved]
  - Delayed graft function [Not Recovered/Not Resolved]
  - Adverse event [Unknown]
  - Renal transplant [Recovered/Resolved with Sequelae]
  - Pyrexia [Recovered/Resolved]
  - Left ventricular failure [Recovered/Resolved with Sequelae]
  - Abdominal abscess [Recovered/Resolved]
  - Nausea [Recovered/Resolved]
  - Diarrhoea [Recovered/Resolved]
  - Acidosis [Recovered/Resolved with Sequelae]
  - Dehydration [Unknown]
  - Fungal infection [Unknown]

NARRATIVE: CASE EVENT DATE: 20160116
